FAERS Safety Report 19882854 (Version 3)
Quarter: 2021Q4

REPORT INFORMATION
  Report Type: Report from Study
  Country: KR (occurrence: KR)
  Receive Date: 20210924
  Receipt Date: 20211018
  Transmission Date: 20220303
  Serious: Yes (Hospitalization)
  Sender: FDA-Public Use
  Company Number: KR-CELLTRION INC.-2021KR012830

PATIENT

DRUGS (2)
  1. INFLIXIMAB [Suspect]
     Active Substance: INFLIXIMAB
     Indication: Ankylosing spondylitis
     Dosage: 3MG/KG (83.5KG) EVERY 6 WEEKS
     Dates: end: 20200914
  2. CELECOXIB [Concomitant]
     Active Substance: CELECOXIB
     Dosage: COMBINATION OF NSAID

REACTIONS (4)
  - Infusion related reaction [Recovered/Resolved]
  - Procalcitonin increased [Unknown]
  - Therapy change [Unknown]
  - Underdose [Unknown]

NARRATIVE: CASE EVENT DATE: 20200914
